FAERS Safety Report 7635493-X (Version None)
Quarter: 2011Q3

REPORT INFORMATION
  Report Type: 
  Country: None (occurrence: None)
  Receive Date: 20110726
  Receipt Date: 20110726
  Transmission Date: 20111222
  Serious: Yes (Life-Threatening, Hospitalization)
  Sender: FDA-Public Use
  Company Number: None

PATIENT
  Age: 51 Year
  Sex: Female
  Weight: 86.182 kg

DRUGS (3)
  1. ENBREL [Concomitant]
  2. STELARA [Suspect]
     Indication: PSORIASIS
     Dosage: 45MG
     Route: 030
     Dates: start: 20091201, end: 20100201
  3. HUMIRA [Concomitant]

REACTIONS (4)
  - BRAIN CANCER METASTATIC [None]
  - DISORIENTATION [None]
  - CEREBROVASCULAR ACCIDENT [None]
  - BLINDNESS [None]
